FAERS Safety Report 23240156 (Version 4)
Quarter: 2024Q2

REPORT INFORMATION
  Report Type: Spontaneous
  Country: US (occurrence: US)
  Receive Date: 20231129
  Receipt Date: 20240524
  Transmission Date: 20240716
  Serious: Yes (Other)
  Sender: FDA-Public Use
  Company Number: US-BRISTOL-MYERS SQUIBB COMPANY-2023-168962

PATIENT
  Age: 79 Year
  Sex: Male

DRUGS (3)
  1. REVLIMID [Suspect]
     Active Substance: LENALIDOMIDE
     Indication: Plasma cell myeloma
  2. REVLIMID [Suspect]
     Active Substance: LENALIDOMIDE
     Dosage: TAKE 1 CAPSULE BY MOUTH EVERY MONDAY, WEDNESDAY, FRIDAY ON FOR 3 WEEKS, THEN 1 WEEK OFF.
     Route: 048
     Dates: start: 20231120, end: 20240216
  3. REVLIMID [Suspect]
     Active Substance: LENALIDOMIDE
     Dosage: TAKE 1 CAPSULE BY MOUTH MONDAY, WEDNESDAY AND FRIDAY WEEKS 1-3 THEN 1 WEEK OFF
     Route: 048

REACTIONS (10)
  - White blood cell count decreased [Recovered/Resolved]
  - Gastrointestinal disorder [Recovering/Resolving]
  - Red blood cell count decreased [Unknown]
  - Asthenia [Unknown]
  - Fall [Unknown]
  - Discouragement [Unknown]
  - Off label use [Unknown]
  - Pruritus [Not Recovered/Not Resolved]
  - Back pain [Not Recovered/Not Resolved]
  - Fatigue [Not Recovered/Not Resolved]
